FAERS Safety Report 16573788 (Version 2)
Quarter: 2020Q1

REPORT INFORMATION
  Report Type: Spontaneous
  Country: GB (occurrence: GB)
  Receive Date: 20190715
  Receipt Date: 20200308
  Transmission Date: 20200409
  Serious: Yes (Other)
  Sender: FDA-Public Use
  Company Number: GB-TEVA-2019-GB-1076759

PATIENT
  Sex: Female

DRUGS (3)
  1. PREDNISOLONE. [Concomitant]
     Active Substance: PREDNISOLONE
     Dosage: 4X5MG TABLETS DAILY FOR 2 WEEKS, THEN 3X5MG THEN 2X5MG AND THEN 1X5MG DAILY FOR 2 WEEKS.
     Dates: end: 20190606
  2. METHOTREXATE. [Suspect]
     Active Substance: METHOTREXATE
     Dosage: 15 MILLIGRAM
     Route: 065
     Dates: start: 20190501
  3. METHOTREXATE. [Suspect]
     Active Substance: METHOTREXATE
     Dates: end: 20190625

REACTIONS (7)
  - Diarrhoea [Unknown]
  - Nausea [Unknown]
  - Arthritis [Unknown]
  - Peripheral swelling [Unknown]
  - Joint swelling [Unknown]
  - Dyspepsia [Unknown]
  - Pain in extremity [Unknown]
